FAERS Safety Report 21142574 (Version 1)
Quarter: 2022Q3

REPORT INFORMATION
  Report Type: Spontaneous
  Country: US (occurrence: US)
  Receive Date: 20220728
  Receipt Date: 20220728
  Transmission Date: 20221026
  Serious: Yes (Other)
  Sender: FDA-Public Use
  Company Number: US-PFIZER INC-202201006412

PATIENT
  Age: 62 Year
  Sex: Female

DRUGS (1)
  1. PAXLOVID [Suspect]
     Active Substance: NIRMATRELVIR\RITONAVIR
     Indication: COVID-19 treatment
     Dosage: UNK

REACTIONS (8)
  - Hepatitis [Unknown]
  - Gastrooesophageal reflux disease [Unknown]
  - Dysgeusia [Not Recovered/Not Resolved]
  - Nausea [Unknown]
  - Malaise [Unknown]
  - Pain [Unknown]
  - Muscle spasms [Unknown]
  - Abdominal discomfort [Unknown]
